FAERS Safety Report 24546826 (Version 6)
Quarter: 2025Q1

REPORT INFORMATION
  Report Type: Report from Study
  Country: ES (occurrence: ES)
  Receive Date: 20241024
  Receipt Date: 20250302
  Transmission Date: 20250409
  Serious: Yes (Other)
  Sender: ABBVIE
  Company Number: ES-ABBVIE-5941832

PATIENT
  Age: 80 Year
  Sex: Female
  Weight: 36 kg

DRUGS (4)
  1. CARBIDOPA\LEVODOPA [Suspect]
     Active Substance: CARBIDOPA\LEVODOPA
     Indication: Parkinson^s disease
     Route: 058
     Dates: start: 20240919
  2. CARBIDOPA\LEVODOPA [Suspect]
     Active Substance: CARBIDOPA\LEVODOPA
     Route: 058
  3. QUETIAPINE [Suspect]
     Active Substance: QUETIAPINE
     Indication: Product used for unknown indication
     Route: 048
     Dates: start: 20240920
  4. QUETIAPINE [Suspect]
     Active Substance: QUETIAPINE
     Indication: Product used for unknown indication
     Route: 048

REACTIONS (13)
  - Eye disorder [Unknown]
  - Underweight [Unknown]
  - Restlessness [Recovering/Resolving]
  - Nodule [Not Recovered/Not Resolved]
  - Infusion site bruising [Unknown]
  - Hypervigilance [Unknown]
  - Fatigue [Unknown]
  - Therapeutic product effect incomplete [Recovered/Resolved]
  - Posture abnormal [Unknown]
  - Unevaluable event [Unknown]
  - Sedation [Unknown]
  - Freezing phenomenon [Recovered/Resolved]
  - Device issue [Unknown]

NARRATIVE: CASE EVENT DATE: 20240101
